FAERS Safety Report 6124464-0 (Version None)
Quarter: 2009Q1

REPORT INFORMATION
  Report Type: 
  Country: None (occurrence: None)
  Receive Date: 20090317
  Receipt Date: 20090317
  Transmission Date: 20090719
  Serious: Yes (Other)
  Sender: FDA-Public Use
  Company Number: None

PATIENT
  Age: 45 Year
  Sex: Male
  Weight: 90.7194 kg

DRUGS (3)
  1. ADVAIR DISKUS 500/50 [Suspect]
     Indication: ASTHMA
     Dosage: 500 TWICE A DAYT OTHER
     Route: 050
     Dates: start: 20070101, end: 20070301
  2. ADVAIR DISKUS 500/50 [Suspect]
     Indication: ASTHMA
     Dosage: 500 TWICE A DAYT OTHER
     Route: 050
     Dates: start: 20071001, end: 20080101
  3. ADVAIR DISKUS 500/50 [Suspect]
     Indication: ASTHMA
     Dosage: 500 TWICE A DAYT OTHER
     Route: 050
     Dates: start: 20080401, end: 20080901

REACTIONS (2)
  - ASTHMA [None]
  - CONDITION AGGRAVATED [None]
